FAERS Safety Report 10441678 (Version 1)
Quarter: 2014Q3

REPORT INFORMATION
  Report Type: Spontaneous
  Country: US (occurrence: US)
  Receive Date: 20140909
  Receipt Date: 20140909
  Transmission Date: 20150326
  Serious: Yes (Other)
  Sender: FDA-Public Use
  Company Number: US-B.I. PHARMACEUTICALS,INC./RIDGEFIELD-2014-BI-40609BP

PATIENT
  Age: 57 Year
  Sex: Female

DRUGS (4)
  1. COPAXONE [Suspect]
     Active Substance: GLATIRAMER ACETATE
     Indication: MULTIPLE SCLEROSIS
     Dosage: 40 MG
     Route: 065
     Dates: start: 2014
  2. MIRAPEX [Suspect]
     Active Substance: PRAMIPEXOLE DIHYDROCHLORIDE
     Indication: SOMNAMBULISM
  3. MIRAPEX [Suspect]
     Active Substance: PRAMIPEXOLE DIHYDROCHLORIDE
     Indication: TREMOR
     Route: 065
  4. MIRAPEX [Suspect]
     Active Substance: PRAMIPEXOLE DIHYDROCHLORIDE
     Indication: DYSKINESIA

REACTIONS (13)
  - Eye infection [Unknown]
  - Cough [Unknown]
  - Infection [Unknown]
  - Hyperhidrosis [Unknown]
  - Visual impairment [Unknown]
  - Vaginal infection [Unknown]
  - Multiple sclerosis relapse [Unknown]
  - Gait disturbance [Unknown]
  - Myalgia [Unknown]
  - Narcolepsy [Unknown]
  - Infected skin ulcer [Unknown]
  - Dysphonia [Unknown]
  - Headache [Unknown]

NARRATIVE: CASE EVENT DATE: 201407
